FAERS Safety Report 8042740 (Version 3)
Quarter: 2012Q4

REPORT INFORMATION
  Report Type: 
  Country: FR (occurrence: FR)
  Receive Date: 20110718
  Receipt Date: 20121228
  Transmission Date: 20130627
  Serious: Yes (Hospitalization)
  Sender: FDA-Public Use
  Company Number: FR-ASTRAZENECA-2011SE41184

PATIENT
  Age: 3 Year
  Sex: Female
  Weight: 16.5 kg

DRUGS (1)
  1. EMLA CREME [Suspect]
     Indication: APPLICATION SITE ANAESTHESIA
     Route: 003
     Dates: start: 20110624, end: 20110624

REACTIONS (7)
  - Overdose [Recovered/Resolved]
  - Convulsion [Recovered/Resolved]
  - Medication error [Recovered/Resolved]
  - Somnolence [Recovered/Resolved]
  - Ataxia [Recovered/Resolved]
  - Vomiting [Recovered/Resolved]
  - Methaemoglobinaemia [Recovered/Resolved]
